FAERS Safety Report 25712391 (Version 1)
Quarter: 2025Q3

REPORT INFORMATION
  Report Type: Spontaneous
  Country: EG (occurrence: EG)
  Receive Date: 20250821
  Receipt Date: 20250821
  Transmission Date: 20251020
  Serious: Yes (Other)
  Sender: B. BRAUN MEDICAL INC.
  Company Number: EG-B. Braun Medical Inc.-EG-BBM-202503112

PATIENT
  Age: 36 Year
  Sex: Female

DRUGS (6)
  1. BUPIVACAINE [Suspect]
     Active Substance: BUPIVACAINE
     Indication: Embolia cutis medicamentosa
  2. HEPARIN [Concomitant]
     Active Substance: HEPARIN SODIUM
     Indication: Superficial vein thrombosis
  3. DEXAMETHASONE [Concomitant]
     Active Substance: DEXAMETHASONE
  4. ENOXAPARIN [Concomitant]
     Active Substance: ENOXAPARIN
  5. CILOSTAZOL [Concomitant]
     Active Substance: CILOSTAZOL
  6. NAFRONYL OXALATE [Concomitant]
     Active Substance: NAFRONYL OXALATE

REACTIONS (1)
  - Horner^s syndrome [Recovered/Resolved]
